FAERS Safety Report 21284351 (Version 2)
Quarter: 2022Q4

REPORT INFORMATION
  Report Type: Spontaneous
  Country: US (occurrence: US)
  Receive Date: 20220902
  Receipt Date: 20221226
  Transmission Date: 20230113
  Serious: Yes (Other)
  Sender: FDA-Public Use
  Company Number: US-BRISTOL-MYERS SQUIBB COMPANY-2022-096194

PATIENT
  Age: 80 Year
  Sex: Female
  Weight: 54.884 kg

DRUGS (2)
  1. POMALYST [Suspect]
     Active Substance: POMALIDOMIDE
     Indication: Plasma cell myeloma
     Dosage: 3W, 1W OFF
     Route: 048
     Dates: start: 20220601
  2. POMALYST [Suspect]
     Active Substance: POMALIDOMIDE
     Dosage: 3W, 1W OFF
     Route: 048

REACTIONS (4)
  - Joint swelling [Unknown]
  - Dizziness [Unknown]
  - Neuropathy peripheral [Unknown]
  - Deep vein thrombosis [Recovering/Resolving]
